FAERS Safety Report 12892130 (Version 1)
Quarter: 2016Q4

REPORT INFORMATION
  Report Type: Report from Study
  Country: US (occurrence: US)
  Receive Date: 20161028
  Receipt Date: 20161028
  Transmission Date: 20170207
  Serious: Yes (Death, Hospitalization, Other)
  Sender: FDA-Public Use
  Company Number: US-BRISTOL-MYERS SQUIBB COMPANY-BMS-2016-086727

PATIENT
  Age: 73 Year
  Sex: Male
  Weight: 178.5 kg

DRUGS (3)
  1. CYTARABINE. [Suspect]
     Active Substance: CYTARABINE
     Indication: ACUTE MYELOID LEUKAEMIA
     Dosage: 1200 MG, UNK
     Route: 065
     Dates: start: 20160926
  2. IDARUBICIN [Suspect]
     Active Substance: IDARUBICIN
     Indication: ACUTE MYELOID LEUKAEMIA
     Dosage: 75 MG, UNK
     Route: 065
     Dates: start: 20160926
  3. PRAVASTATIN SODIUM. [Suspect]
     Active Substance: PRAVASTATIN SODIUM
     Indication: ACUTE MYELOID LEUKAEMIA
     Dosage: 10240 MG, UNK
     Route: 065
     Dates: start: 20160923

REACTIONS (1)
  - Enteritis infectious [Fatal]

NARRATIVE: CASE EVENT DATE: 20161009
